FAERS Safety Report 4618508-2 (Version None)
Quarter: 2005Q1

REPORT INFORMATION
  Report Type: 
  Country: None (occurrence: None)
  Receive Date: 20050324
  Receipt Date: 20050314
  Transmission Date: 20050727
  Serious: Yes (Other)
  Sender: FDA-Public Use
  Company Number: SU-2005-003252

PATIENT
  Age: 64 Year
  Sex: Female

DRUGS (6)
  1. OLMETEC [Suspect]
     Indication: HYPERTENSION
     Dosage: 20 MG QD PO
     Route: 048
     Dates: start: 20050224
  2. AMLODIPINE [Concomitant]
  3. UNSPECIFIED VITAMIN [Concomitant]
  4. CALCIUM GLUCONATE [Concomitant]
  5. FRONTAL [Concomitant]
  6. ESTRIOL [Concomitant]

REACTIONS (5)
  - ABDOMINAL PAIN [None]
  - BLOOD PRESSURE INCREASED [None]
  - DIZZINESS [None]
  - HEADACHE [None]
  - PAIN IN EXTREMITY [None]
